FAERS Safety Report 10507932 (Version 1)
Quarter: 2014Q4

REPORT INFORMATION
  Report Type: Spontaneous
  Country: DE (occurrence: DE)
  Receive Date: 20141009
  Receipt Date: 20141009
  Transmission Date: 20150528
  Serious: Yes (Other)
  Sender: FDA-Public Use
  Company Number: GXKR2014DE003762

PATIENT
  Sex: Female

DRUGS (2)
  1. LOPEDIUM [Suspect]
     Active Substance: LOPERAMIDE
     Indication: IRRITABLE BOWEL SYNDROME
     Dosage: UNK DF, UNK
     Route: 048
  2. LOPEDIUM [Suspect]
     Active Substance: LOPERAMIDE
     Dosage: UNK DF, UNK
     Route: 048

REACTIONS (2)
  - Drug abuse [None]
  - Incorrect dosage administered [Unknown]
